FAERS Safety Report 25668825 (Version 2)
Quarter: 2025Q3

REPORT INFORMATION
  Report Type: Spontaneous
  Country: EU (occurrence: EU)
  Receive Date: 20250812
  Receipt Date: 20250814
  Transmission Date: 20251021
  Serious: Yes (Other)
  Sender: CELLTRION
  Company Number: EU-ABBVIE-6316154

PATIENT

DRUGS (7)
  1. ADALIMUMAB [Suspect]
     Active Substance: ADALIMUMAB
     Indication: Crohn^s disease
     Route: 058
     Dates: start: 202405
  2. ADALIMUMAB [Suspect]
     Active Substance: ADALIMUMAB
     Route: 058
  3. ADALIMUMAB [Suspect]
     Active Substance: ADALIMUMAB
     Route: 058
     Dates: end: 202409
  4. ADALIMUMAB [Suspect]
     Active Substance: ADALIMUMAB
     Route: 058
  5. PERICIAZINE [Concomitant]
     Active Substance: PERICIAZINE
     Indication: Sleep disorder
     Dates: start: 2021
  6. METRONIDAZOLE SODIUM [Concomitant]
     Active Substance: METRONIDAZOLE SODIUM
     Indication: Crohn^s disease
  7. ACYCLOVIR [Concomitant]
     Active Substance: ACYCLOVIR
     Indication: Aphthous ulcer
     Route: 048
     Dates: start: 202409

REACTIONS (11)
  - Haematochezia [Unknown]
  - Decreased appetite [Unknown]
  - Diarrhoea [Unknown]
  - Folate deficiency [Unknown]
  - Inflammatory marker increased [Unknown]
  - Faecal calprotectin abnormal [Unknown]
  - Aphthous ulcer [Unknown]
  - Weight decreased [Unknown]
  - Iron deficiency anaemia [Unknown]
  - Therapeutic product effect incomplete [Unknown]
  - Oral disorder [Recovering/Resolving]

NARRATIVE: CASE EVENT DATE: 20240101
